FAERS Safety Report 10260113 (Version 1)
Quarter: 2014Q2

REPORT INFORMATION
  Report Type: Report from Study
  Country: AU (occurrence: AU)
  Receive Date: 20140625
  Receipt Date: 20140625
  Transmission Date: 20141212
  Serious: Yes (Other)
  Sender: FDA-Public Use
  Company Number: AU-BAXTER-2014BAX034786

PATIENT
  Sex: 0

DRUGS (1)
  1. HEMOSOL BO [Suspect]
     Indication: CONTINUOUS HAEMODIAFILTRATION
     Route: 010

REACTIONS (1)
  - Hypophosphataemia [Unknown]
